FAERS Safety Report 10667347 (Version 5)
Quarter: 2015Q3

REPORT INFORMATION
  Report Type: Spontaneous
  Country: JP (occurrence: JP)
  Receive Date: 20141222
  Receipt Date: 20150820
  Transmission Date: 20151125
  Serious: Yes (Other)
  Sender: FDA-Public Use
  Company Number: PHHY2014JP165993

PATIENT
  Age: 80 Year
  Sex: Female
  Weight: 44 kg

DRUGS (21)
  1. MENESIT [Suspect]
     Active Substance: CARBIDOPA\LEVODOPA
     Dosage: 400 MG, UNK
     Route: 048
     Dates: start: 20130903
  2. FP [Suspect]
     Active Substance: SELEGILINE HYDROCHLORIDE
     Indication: PARKINSON^S DISEASE
     Dosage: 2.5 MG, BID
     Route: 048
     Dates: start: 20120607
  3. DEPAS [Concomitant]
     Active Substance: ETIZOLAM
     Indication: INSOMNIA
     Dosage: 0.5 MG, QD
     Route: 048
     Dates: start: 20120604
  4. COMTAN [Suspect]
     Active Substance: ENTACAPONE
     Indication: PARKINSON^S DISEASE
     Dosage: 100 MG, QD
     Route: 048
     Dates: start: 20120607
  5. COMTAN [Suspect]
     Active Substance: ENTACAPONE
     Dosage: 400 MG, UNK
     Route: 048
     Dates: start: 20130903
  6. FP [Suspect]
     Active Substance: SELEGILINE HYDROCHLORIDE
     Dosage: 2.5 MG, QD
     Route: 048
     Dates: start: 20131030, end: 20140205
  7. MENESIT [Suspect]
     Active Substance: CARBIDOPA\LEVODOPA
     Dosage: 500 MG, UNK
     Route: 048
     Dates: start: 20130522
  8. MIRAPEX [Concomitant]
     Active Substance: PRAMIPEXOLE DIHYDROCHLORIDE
     Indication: PARKINSON^S DISEASE
     Dosage: 0.75 MG, QD
     Route: 048
     Dates: start: 201206
  9. MUCOSTA [Concomitant]
     Active Substance: REBAMIPIDE
     Indication: GASTRITIS
     Dosage: 100 MG, TID
     Route: 048
     Dates: start: 20120604
  10. COMTAN [Suspect]
     Active Substance: ENTACAPONE
     Dosage: 300 MG, UNK
     Route: 048
     Dates: start: 20131211
  11. LENDORMIN [Concomitant]
     Active Substance: BROTIZOLAM
     Indication: INSOMNIA
     Dosage: 0.25 MG, QD
     Route: 048
     Dates: start: 20120604
  12. MEMARY [Concomitant]
     Active Substance: MEMANTINE HYDROCHLORIDE
     Indication: DEMENTIA
     Dosage: 10 MG, QD
     Route: 048
     Dates: start: 20120720
  13. COMTAN [Suspect]
     Active Substance: ENTACAPONE
     Dosage: 100 MG, UNK
     Route: 048
     Dates: start: 20140319
  14. RIVOTRIL [Concomitant]
     Active Substance: CLONAZEPAM
     Indication: SEIZURE
     Dosage: 0.5 MG, QID
     Route: 048
     Dates: start: 20120604
  15. COMTAN [Suspect]
     Active Substance: ENTACAPONE
     Dosage: 500 MG, UNK
     Route: 048
     Dates: start: 20130522
  16. MENESIT [Suspect]
     Active Substance: CARBIDOPA\LEVODOPA
     Indication: PARKINSON^S DISEASE
     Dosage: 500 MG, UNK
     Route: 048
     Dates: start: 20120607
  17. MENESIT [Suspect]
     Active Substance: CARBIDOPA\LEVODOPA
     Dosage: 600 MG, UNK
     Route: 048
     Dates: start: 20120703
  18. METLIGINE [Suspect]
     Active Substance: MIDODRINE HYDROCHLORIDE
     Indication: ORTHOSTATIC HYPOTENSION
     Dosage: 2 MG, BID
     Route: 048
     Dates: start: 20120626, end: 20121205
  19. COMTAN [Suspect]
     Active Substance: ENTACAPONE
     Dosage: 300 MG, UNK
     Route: 048
     Dates: start: 20120718
  20. COMTAN [Suspect]
     Active Substance: ENTACAPONE
     Dosage: 100 MG, 6QD
     Route: 048
     Dates: start: 20120725
  21. COMTAN [Suspect]
     Active Substance: ENTACAPONE
     Dosage: 200 MG, UNK
     Route: 048
     Dates: start: 20140108

REACTIONS (5)
  - Neurotransmitter level altered [Recovering/Resolving]
  - Drug interaction [Unknown]
  - Orthostatic hypotension [Unknown]
  - Hypertension [Recovering/Resolving]
  - Norepinephrine increased [Recovering/Resolving]

NARRATIVE: CASE EVENT DATE: 201210
